FAERS Safety Report 6938832-8 (Version None)
Quarter: 2010Q3

REPORT INFORMATION
  Report Type: 
  Country: None (occurrence: None)
  Receive Date: 20100824
  Receipt Date: 20100811
  Transmission Date: 20110219
  Serious: Yes (Hospitalization, Other)
  Sender: FDA-Public Use
  Company Number: GR-PFIZER INC-2010101323

PATIENT
  Age: 76 Year
  Sex: Male

DRUGS (3)
  1. METHYLPREDNISOLONE [Suspect]
     Dosage: 24 MG, UNK
     Route: 048
  2. INFLIXIMAB [Suspect]
     Indication: COLITIS ULCERATIVE
  3. FOLIC ACID [Suspect]

REACTIONS (1)
  - LISTERIOSIS [None]
